FAERS Safety Report 6142320-9 (Version None)
Quarter: 2009Q2

REPORT INFORMATION
  Report Type: 
  Country: None (occurrence: None)
  Receive Date: 20090403
  Receipt Date: 20090325
  Transmission Date: 20091009
  Serious: Yes (Other)
  Sender: FDA-Public Use
  Company Number: PHEH2009US02929

PATIENT
  Sex: Female

DRUGS (2)
  1. RECLAST [Suspect]
     Dosage: 5 MG, YEARLY
     Dates: start: 20081223, end: 20081231
  2. NEXIUM [Concomitant]

REACTIONS (8)
  - EYE PAIN [None]
  - GLAUCOMA [None]
  - INFLUENZA LIKE ILLNESS [None]
  - INTRAOCULAR PRESSURE INCREASED [None]
  - LACRIMATION INCREASED [None]
  - PHOTOPHOBIA [None]
  - PYREXIA [None]
  - UVEITIS [None]
